FAERS Safety Report 7136167-4 (Version None)
Quarter: 2010Q4

REPORT INFORMATION
  Report Type: 
  Country: None (occurrence: None)
  Receive Date: 20101206
  Receipt Date: 20070712
  Transmission Date: 20110411
  Serious: Yes (Death)
  Sender: FDA-Public Use
  Company Number: US-ACTELION-A-US2007-15072

PATIENT

DRUGS (11)
  1. ILOPROST INHALATION SOLUTION 5UG US [Suspect]
     Indication: PULMONARY ARTERIAL HYPERTENSION
     Dosage: 5 UG, 6-9XDAY
     Route: 055
     Dates: start: 20070227, end: 20070707
  2. LIPITOR [Concomitant]
  3. PREDNISONE [Concomitant]
  4. LASIX [Concomitant]
  5. FERROUS GLUCONATE [Concomitant]
  6. TOPROL-XL [Concomitant]
  7. COUMADIN [Concomitant]
  8. HUMALOG [Concomitant]
  9. LANOXIN [Concomitant]
  10. ALTACE [Concomitant]
  11. PROCRIT [Concomitant]

REACTIONS (3)
  - DEATH [None]
  - DIZZINESS [None]
  - NAUSEA [None]
